FAERS Safety Report 11746252 (Version 1)
Quarter: 2015Q4

REPORT INFORMATION
  Report Type: Spontaneous
  Country: US (occurrence: None)
  Receive Date: 20151116
  Receipt Date: 20151116
  Transmission Date: 20160304
  Serious: Yes (Hospitalization)
  Sender: FDA-Public Use
  Company Number: None

PATIENT
  Age: 53 Year
  Sex: Male
  Weight: 70.76 kg

DRUGS (8)
  1. KEEPRA [Concomitant]
  2. BRILLIANTA [Concomitant]
  3. PROZAC [Concomitant]
     Active Substance: FLUOXETINE HYDROCHLORIDE
  4. DEFIB [Concomitant]
  5. CARVEDILOL. [Concomitant]
     Active Substance: CARVEDILOL
  6. PACE MAKER [Concomitant]
  7. SOTALOL 90 [Suspect]
     Active Substance: SOTALOL
     Indication: ARRHYTHMIA
     Route: 048
     Dates: start: 20150718, end: 20150917
  8. ASPIRIN. [Concomitant]
     Active Substance: ASPIRIN

REACTIONS (4)
  - Anxiety [None]
  - Agitation [None]
  - Paranoia [None]
  - Accidental overdose [None]

NARRATIVE: CASE EVENT DATE: 20150828
